FAERS Safety Report 5226249-6 (Version None)
Quarter: 2007Q1

REPORT INFORMATION
  Report Type: 
  Country: None (occurrence: None)
  Receive Date: 20070201
  Receipt Date: 20070124
  Transmission Date: 20070707
  Serious: Yes (Other)
  Sender: FDA-Public Use
  Company Number: US-ROCHE-468464

PATIENT
  Age: 40 Year
  Sex: Female
  Weight: 62.6 kg

DRUGS (2)
  1. ACCUTANE [Suspect]
     Route: 065
     Dates: start: 19840615, end: 19840615
  2. ACCUTANE [Suspect]
     Route: 065
     Dates: start: 19850615, end: 19850615

REACTIONS (15)
  - ANXIETY [None]
  - ARRHYTHMIA [None]
  - DEPRESSION [None]
  - DIVERTICULITIS [None]
  - EPISTAXIS [None]
  - FUCHS' SYNDROME [None]
  - GASTRIC ULCER [None]
  - GASTROINTESTINAL PAIN [None]
  - HEPATIC ENZYME INCREASED [None]
  - INTERVERTEBRAL DISC DISORDER [None]
  - MEASLES [None]
  - OSTEOPOROSIS [None]
  - PALPITATIONS [None]
  - PANIC ATTACK [None]
  - SUICIDAL IDEATION [None]
